FAERS Safety Report 20597426 (Version 1)
Quarter: 2022Q1

REPORT INFORMATION
  Report Type: Report from Study
  Country: US (occurrence: US)
  Receive Date: 20220315
  Receipt Date: 20220315
  Transmission Date: 20220423
  Serious: Yes (Death, Other)
  Sender: FDA-Public Use
  Company Number: US-PURDUE-USA-2022-0291990

PATIENT
  Age: 61 Year
  Sex: Male

DRUGS (6)
  1. ACETAMINOPHEN\HYDROCODONE BITARTRATE [Suspect]
     Active Substance: ACETAMINOPHEN\HYDROCODONE BITARTRATE
     Indication: Product used for unknown indication
     Dosage: UNKNOWN
     Route: 048
  2. CARVEDILOL [Suspect]
     Active Substance: CARVEDILOL
     Indication: Product used for unknown indication
     Dosage: UNKNOWN
     Route: 048
  3. ALPRAZOLAM [Suspect]
     Active Substance: ALPRAZOLAM
     Indication: Product used for unknown indication
     Dosage: UNKNOWN
     Route: 048
  4. TIZANIDINE [Suspect]
     Active Substance: TIZANIDINE
     Indication: Product used for unknown indication
     Dosage: UNKNOWN
     Route: 048
  5. ROPINIROLE [Suspect]
     Active Substance: ROPINIROLE
     Indication: Product used for unknown indication
     Dosage: UNKNOWN
     Route: 048
  6. ALCOHOL [Suspect]
     Active Substance: ALCOHOL
     Indication: Product used for unknown indication
     Dosage: UNKNOWN
     Route: 048

REACTIONS (1)
  - Completed suicide [Fatal]

NARRATIVE: CASE EVENT DATE: 20200101
